FAERS Safety Report 5073926-6 (Version None)
Quarter: 2006Q3

REPORT INFORMATION
  Report Type: 
  Country: None (occurrence: None)
  Receive Date: 20060808
  Receipt Date: 20050610
  Transmission Date: 20061208
  Serious: No
  Sender: FDA-Public Use
  Company Number: US-AMGEN-KDL138321

PATIENT
  Sex: Male
  Weight: 118.9 kg

DRUGS (6)
  1. PROCRIT [Suspect]
     Indication: ANAEMIA
     Dates: start: 20050528, end: 20050609
  2. GLYBURIDE [Concomitant]
  3. FUROSEMIDE [Concomitant]
  4. ENALAPRIL MALEATE [Concomitant]
  5. UNSPECIFIED MEDICATION [Concomitant]
  6. POTASSIUM [Concomitant]

REACTIONS (2)
  - DIARRHOEA [None]
  - HEADACHE [None]
